FAERS Safety Report 4267643-X (Version None)
Quarter: 2004Q1

REPORT INFORMATION
  Report Type: 
  Country: None (occurrence: None)
  Receive Date: 20040109
  Receipt Date: 20031110
  Transmission Date: 20041129
  Serious: No
  Sender: FDA-Public Use
  Company Number: US-GLAXOSMITHKLINE-A0439050A

PATIENT
  Sex: Female

DRUGS (2)
  1. WELLBUTRIN [Suspect]
  2. PREDNISONE [Concomitant]

REACTIONS (1)
  - ALOPECIA [None]
